FAERS Safety Report 18461190 (Version 1)
Quarter: 2020Q4

REPORT INFORMATION
  Report Type: Spontaneous
  Country: MX (occurrence: MX)
  Receive Date: 20201104
  Receipt Date: 20201104
  Transmission Date: 20210114
  Serious: Yes (Hospitalization)
  Sender: FDA-Public Use
  Company Number: MX-TORRENT-00000182

PATIENT
  Age: 26 Year
  Sex: Male

DRUGS (1)
  1. BUPROPION. [Suspect]
     Active Substance: BUPROPION
     Indication: PRODUCT USED FOR UNKNOWN INDICATION
     Route: 048
     Dates: start: 20200701

REACTIONS (2)
  - Abscess drainage [Not Recovered/Not Resolved]
  - Abscess rupture [Not Recovered/Not Resolved]

NARRATIVE: CASE EVENT DATE: 20201022
